FAERS Safety Report 4929344-1 (Version None)
Quarter: 2006Q1

REPORT INFORMATION
  Report Type: 
  Country: None (occurrence: None)
  Receive Date: 20060224
  Receipt Date: 20060214
  Transmission Date: 20060701
  Serious: Yes (Death)
  Sender: FDA-Public Use
  Company Number: 2006024635

PATIENT

DRUGS (1)
  1. DALTEPARIN SODIUM [Suspect]
     Indication: ILL-DEFINED DISORDER
     Dosage: INTRAMUSCULAR
     Route: 030

REACTIONS (3)
  - ABDOMINAL HAEMATOMA [None]
  - DRUG ADMINISTRATION ERROR [None]
  - WRONG TECHNIQUE IN DRUG USAGE PROCESS [None]
